FAERS Safety Report 7643569-6 (Version None)
Quarter: 2011Q3

REPORT INFORMATION
  Report Type: 
  Country: None (occurrence: None)
  Receive Date: 20110729
  Receipt Date: 20110719
  Transmission Date: 20111222
  Serious: Yes (Hospitalization)
  Sender: FDA-Public Use
  Company Number: JP-JNJFOC-20110612162

PATIENT
  Age: 80 Year
  Sex: Male

DRUGS (2)
  1. UNISIA [Concomitant]
     Route: 048
  2. GALANTAMINE HYDROBROMIDE [Suspect]
     Indication: DEMENTIA ALZHEIMER'S TYPE
     Route: 048
     Dates: start: 20110513, end: 20110602

REACTIONS (3)
  - PYREXIA [None]
  - CONVULSION [None]
  - MUSCULOSKELETAL STIFFNESS [None]
